FAERS Safety Report 6068596-4 (Version None)
Quarter: 2009Q1

REPORT INFORMATION
  Report Type: 
  Country: None (occurrence: None)
  Receive Date: 20090206
  Receipt Date: 20090130
  Transmission Date: 20090719
  Serious: Yes (Other)
  Sender: FDA-Public Use
  Company Number: US-PFIZER INC-2009164066

PATIENT
  Sex: Female
  Weight: 95.238 kg

DRUGS (11)
  1. XALATAN [Suspect]
     Indication: GLAUCOMA
     Dosage: 2 GTT, 1X/DAY
     Dates: start: 20080901
  2. PREDNISONE [Suspect]
     Indication: RHEUMATOID ARTHRITIS
  3. LISINOPRIL [Concomitant]
  4. HUMIRA [Concomitant]
  5. NAPROXEN SODIUM [Concomitant]
  6. SULFASALAZINE [Concomitant]
  7. SYNTHROID [Concomitant]
  8. PERCOCET [Concomitant]
  9. VITAMIN D [Concomitant]
  10. CALCIUM [Concomitant]
  11. IRON [Concomitant]

REACTIONS (3)
  - GLAUCOMA [None]
  - SKIN DISCOLOURATION [None]
  - VISUAL IMPAIRMENT [None]
